FAERS Safety Report 11728945 (Version 3)
Quarter: 2015Q4

REPORT INFORMATION
  Report Type: Spontaneous
  Country: HR (occurrence: HR)
  Receive Date: 20151112
  Receipt Date: 20151124
  Transmission Date: 20160304
  Serious: Yes (Hospitalization)
  Sender: FDA-Public Use
  Company Number: HR-SA-2015SA177664

PATIENT
  Age: 53 Year
  Sex: Female
  Weight: 73 kg

DRUGS (5)
  1. DOCETAXEL. [Suspect]
     Active Substance: DOCETAXEL
     Indication: ADENOCARCINOMA OF COLON
     Route: 048
     Dates: start: 20151010, end: 20151010
  2. CISPLATIN. [Suspect]
     Active Substance: CISPLATIN
     Indication: ADENOCARCINOMA OF COLON
     Route: 065
     Dates: start: 20151010, end: 20151010
  3. DEXAMETHASONE ^KRKA^ [Concomitant]
     Dosage: FORM: AMPOULES
     Route: 042
  4. SYNOPEN [Concomitant]
     Dosage: FORM: AMPOULES
     Route: 042
     Dates: start: 20151010, end: 20151010
  5. GRANISETRON [Concomitant]
     Active Substance: GRANISETRON
     Dosage: FORM: CONCENTRATE FOR SOLUTION FOR INJECTION OR INFUSION
     Route: 042
     Dates: start: 20151010, end: 20151010

REACTIONS (2)
  - Paraesthesia [Recovered/Resolved]
  - Pain in extremity [Recovered/Resolved]

NARRATIVE: CASE EVENT DATE: 20151012
